FAERS Safety Report 9663857 (Version 1)
Quarter: 2013Q4

REPORT INFORMATION
  Report Type: Spontaneous
  Country: GB (occurrence: GB)
  Receive Date: 20131101
  Receipt Date: 20131101
  Transmission Date: 20140711
  Serious: Yes (Other)
  Sender: FDA-Public Use
  Company Number: GB-TEVA-439940ISR

PATIENT
  Age: 42 Year
  Sex: Female
  Weight: 52.34 kg

DRUGS (2)
  1. AMITRIPTYLINE [Suspect]
     Indication: FIBROMYALGIA
     Dates: start: 201203
  2. AMITRIPTYLINE [Suspect]
     Indication: FIBROMYALGIA
     Dates: start: 201210

REACTIONS (6)
  - Dysarthria [Recovered/Resolved]
  - Abnormal behaviour [Recovered/Resolved]
  - Hallucination, auditory [Recovered/Resolved]
  - Mania [Recovered/Resolved]
  - Pruritus generalised [Recovered/Resolved]
  - Product substitution issue [Unknown]
